FAERS Safety Report 9441596 (Version 1)
Quarter: 2013Q3

REPORT INFORMATION
  Report Type: Spontaneous
  Country: US (occurrence: US)
  Receive Date: 20130806
  Receipt Date: 20130806
  Transmission Date: 20140515
  Serious: Yes (Other)
  Sender: FDA-Public Use
  Company Number: US-AMGEN-USASP2013053505

PATIENT
  Age: 62 Year
  Sex: Female

DRUGS (1)
  1. ENBREL [Suspect]
     Indication: PSORIASIS
     Dosage: 50 MG, 2 TIMES/WK, USING 2 25MG DOSES
     Route: 065
     Dates: start: 20040422

REACTIONS (2)
  - Immunosuppression [Recovered/Resolved]
  - Sinusitis [Recovered/Resolved]
